FAERS Safety Report 18938782 (Version 1)
Quarter: 2021Q1

REPORT INFORMATION
  Report Type: Spontaneous
  Country: US (occurrence: US)
  Receive Date: 20210225
  Receipt Date: 20210225
  Transmission Date: 20210420
  Serious: Yes (Hospitalization)
  Sender: FDA-Public Use
  Company Number: None

PATIENT
  Age: 49 Year
  Sex: Male
  Weight: 92.25 kg

DRUGS (1)
  1. TOCILIZUMAB. [Suspect]
     Active Substance: TOCILIZUMAB
     Indication: RHEUMATOID ARTHRITIS
     Dosage: ?          OTHER FREQUENCY:ONCE;?
     Dates: start: 20200616, end: 20200616

REACTIONS (3)
  - Reversible cerebral vasoconstriction syndrome [None]
  - Intraventricular haemorrhage [None]
  - Subarachnoid haemorrhage [None]

NARRATIVE: CASE EVENT DATE: 20200620
